FAERS Safety Report 6887854-4 (Version None)
Quarter: 2010Q3

REPORT INFORMATION
  Report Type: 
  Country: None (occurrence: None)
  Receive Date: 20100730
  Receipt Date: 20100722
  Transmission Date: 20110219
  Serious: Yes (Hospitalization)
  Sender: FDA-Public Use
  Company Number: JP-GENENTECH-304595

PATIENT

DRUGS (2)
  1. RITUXAN [Suspect]
     Indication: WALDENSTROM'S MACROGLOBULINAEMIA
  2. FLUDARABINE PHOSPHATE [Concomitant]
     Indication: WALDENSTROM'S MACROGLOBULINAEMIA

REACTIONS (1)
  - HEPATIC FUNCTION ABNORMAL [None]
